FAERS Safety Report 20516424 (Version 2)
Quarter: 2022Q1

REPORT INFORMATION
  Report Type: Spontaneous
  Country: ES (occurrence: ES)
  Receive Date: 20220225
  Receipt Date: 20220304
  Transmission Date: 20220423
  Serious: Yes (Other)
  Sender: FDA-Public Use
  Company Number: ES-GILEAD-2022-0570692

PATIENT
  Age: 52 Year
  Sex: Female

DRUGS (4)
  1. CAYSTON [Suspect]
     Active Substance: AZTREONAM
     Indication: Product used for unknown indication
     Route: 065
  2. AMBISOME [Concomitant]
     Active Substance: AMPHOTERICIN B
  3. AVIBACTAM SODIUM\CEFTAZIDIME [Concomitant]
     Active Substance: AVIBACTAM SODIUM\CEFTAZIDIME
  4. ANIDULAFUNGIN [Concomitant]
     Active Substance: ANIDULAFUNGIN

REACTIONS (9)
  - Chronic kidney disease [Unknown]
  - Hypothermia [Unknown]
  - Multiple organ dysfunction syndrome [Unknown]
  - Hemiplegia [Unknown]
  - Haemodynamic instability [Unknown]
  - Candida infection [Unknown]
  - Leukocytosis [Unknown]
  - Procalcitonin increased [Unknown]
  - Nervous system disorder [Unknown]
